FAERS Safety Report 26086575 (Version 1)
Quarter: 2025Q4

REPORT INFORMATION
  Report Type: Spontaneous
  Country: CO (occurrence: CO)
  Receive Date: 20251125
  Receipt Date: 20251125
  Transmission Date: 20260118
  Serious: Yes (Other)
  Sender: REGENERON
  Company Number: CO-BAYER-2025A154591

PATIENT
  Sex: Male

DRUGS (1)
  1. EYLEA [Suspect]
     Active Substance: AFLIBERCEPT
     Indication: Macular degeneration
     Dosage: 40 MG, Q1MON, ( 40 MG/ML/0.278 ML), SOLUTION FOR INJECTION, 40 MG/ML
     Route: 031
     Dates: start: 20221111

REACTIONS (1)
  - Toe amputation [Recovered/Resolved]

NARRATIVE: CASE EVENT DATE: 20250918
